FAERS Safety Report 23730372 (Version 1)
Quarter: 2024Q2

REPORT INFORMATION
  Report Type: Spontaneous
  Country: DE (occurrence: DE)
  Receive Date: 20240411
  Receipt Date: 20240411
  Transmission Date: 20240716
  Serious: Yes (Death, Hospitalization, Other)
  Sender: FDA-Public Use
  Company Number: DE-STRIDES ARCOLAB LIMITED-2024SP004048

PATIENT
  Age: 53 Year
  Sex: Female

DRUGS (11)
  1. DOXORUBICIN [Suspect]
     Active Substance: DOXORUBICIN
     Indication: Adrenocortical carcinoma
     Dosage: UNK
     Route: 065
  2. DOXORUBICIN [Suspect]
     Active Substance: DOXORUBICIN
     Dosage: UNK, CYCLICAL (AFTER THORACOSCOPIC SURGERY)
     Route: 065
  3. ETOPOSIDE [Suspect]
     Active Substance: ETOPOSIDE
     Indication: Adrenocortical carcinoma
     Dosage: UNK
     Route: 065
  4. ETOPOSIDE [Suspect]
     Active Substance: ETOPOSIDE
     Dosage: UNK, CYCLICAL (AFTER THORACOSCOPIC SURGERY)
     Route: 065
  5. MITOTANE [Suspect]
     Active Substance: MITOTANE
     Indication: Adrenocortical carcinoma
     Dosage: UNK
     Route: 065
  6. MITOTANE [Suspect]
     Active Substance: MITOTANE
     Dosage: UNK
     Route: 065
  7. CISPLATIN [Suspect]
     Active Substance: CISPLATIN
     Indication: Adrenocortical carcinoma
     Dosage: UNK
     Route: 065
  8. CISPLATIN [Suspect]
     Active Substance: CISPLATIN
     Dosage: UNK, CYCLICAL (AFTER THORACOSCOPIC SURGERY)
     Route: 065
  9. STREPTOZOCIN [Suspect]
     Active Substance: STREPTOZOCIN
     Indication: Adrenocortical carcinoma
     Dosage: UNK, CYCLICAL
     Route: 065
  10. PEMBROLIZUMAB [Suspect]
     Active Substance: PEMBROLIZUMAB
     Indication: Adrenocortical carcinoma
     Dosage: 200 MILLIGRAM, EVERY 3 WEEKS ONCE
     Route: 065
  11. METYRAPONE [Concomitant]
     Active Substance: METYRAPONE
     Indication: Hyperadrenocorticism
     Dosage: UNK
     Route: 065

REACTIONS (6)
  - Polyneuropathy [Unknown]
  - Malignant neoplasm progression [Fatal]
  - Drug ineffective [Fatal]
  - COVID-19 [Unknown]
  - COVID-19 pneumonia [Unknown]
  - Off label use [Unknown]
